FAERS Safety Report 24271673 (Version 1)
Quarter: 2024Q3

REPORT INFORMATION
  Report Type: Spontaneous
  Country: US (occurrence: US)
  Receive Date: 20240902
  Receipt Date: 20240902
  Transmission Date: 20241017
  Serious: No
  Sender: STRIDES
  Company Number: US-STRIDES ARCOLAB LIMITED-2024SP006828

PATIENT
  Age: 47 Year
  Sex: Female

DRUGS (2)
  1. HYDROCORTISONE [Suspect]
     Active Substance: HYDROCORTISONE\HYDROCORTISONE ACETATE
     Indication: Benign neoplasm of adrenal gland
     Dosage: 10 MILLIGRAM, EVERY MORNING
     Route: 065
  2. HYDROCORTISONE [Suspect]
     Active Substance: HYDROCORTISONE\HYDROCORTISONE ACETATE
     Dosage: 5 MILLIGRAM (IN THE EVENING)
     Route: 065

REACTIONS (2)
  - Product dose omission issue [Unknown]
  - Treatment noncompliance [Unknown]
